FAERS Safety Report 25123493 (Version 1)
Quarter: 2025Q1

REPORT INFORMATION
  Report Type: Spontaneous
  Country: US (occurrence: US)
  Receive Date: 20250326
  Receipt Date: 20250326
  Transmission Date: 20250408
  Serious: No
  Sender: GRIFOLS
  Company Number: US-IGSA-BIG0031527

PATIENT
  Age: 72 Year
  Sex: Female
  Weight: 68 kg

DRUGS (20)
  1. PROLASTIN-C LIQUID [Suspect]
     Active Substance: .ALPHA.1-PROTEINASE INHIBITOR HUMAN
     Indication: Alpha-1 antitrypsin deficiency
     Dosage: 4184 MILLIGRAM, Q.WK.
     Route: 042
  2. MIDODRINE HYDROCHLORIDE [Concomitant]
     Active Substance: MIDODRINE HYDROCHLORIDE
  3. OXYCODONE HYDROCHLORIDE [Concomitant]
     Active Substance: OXYCODONE HYDROCHLORIDE
  4. SIMETHICONE + ALVERINE CITRATE [Concomitant]
  5. CYPROHEPTADINE HYDROCHLORIDE [Concomitant]
     Active Substance: CYPROHEPTADINE HYDROCHLORIDE
  6. FLUTICASONE PROPIONATE [Concomitant]
     Active Substance: FLUTICASONE PROPIONATE
  7. CODEINE PHOSPHATE\GUAIFENESIN [Concomitant]
     Active Substance: CODEINE PHOSPHATE\GUAIFENESIN
  8. LIDOCAINE\PRILOCAINE HYDROCHLORIDE [Concomitant]
     Active Substance: LIDOCAINE\PRILOCAINE HYDROCHLORIDE
  9. TRELEGY ELLIPTA [Concomitant]
     Active Substance: FLUTICASONE FUROATE\UMECLIDINIUM BROMIDE\VILANTEROL TRIFENATATE
  10. GABAPENTIN [Concomitant]
     Active Substance: GABAPENTIN
  11. PANTOPRAZOLE SODIUM ANHYDROUS [Concomitant]
     Active Substance: PANTOPRAZOLE SODIUM ANHYDROUS
  12. DEXTROSE\SODIUM CHLORIDE [Concomitant]
     Active Substance: DEXTROSE\SODIUM CHLORIDE
  13. ASPIRIN [Concomitant]
     Active Substance: ASPIRIN
  14. BACTRIM DS [Concomitant]
     Active Substance: SULFAMETHOXAZOLE\TRIMETHOPRIM
  15. ALBUTEROL SULFATE [Concomitant]
     Active Substance: ALBUTEROL SULFATE
  16. OXYGEN [Concomitant]
     Active Substance: OXYGEN
  17. EPINEPHRINE [Concomitant]
     Active Substance: EPINEPHRINE
  18. HEPARIN (IODISED) SODIUM [Concomitant]
  19. LIDOCAINE\PRILOCAINE [Concomitant]
     Active Substance: LIDOCAINE\PRILOCAINE
  20. DEXTROSE\SODIUM CHLORIDE [Concomitant]
     Active Substance: DEXTROSE\SODIUM CHLORIDE

REACTIONS (2)
  - Intentional dose omission [Unknown]
  - Malaise [Unknown]

NARRATIVE: CASE EVENT DATE: 20241106
